FAERS Safety Report 5563131-9 (Version None)
Quarter: 2007Q4

REPORT INFORMATION
  Report Type: 
  Country: None (occurrence: None)
  Receive Date: 20071217
  Receipt Date: 20071211
  Transmission Date: 20080405
  Serious: Yes (Other)
  Sender: FDA-Public Use
  Company Number: B0490657A

PATIENT
  Age: 29 Year
  Sex: Male

DRUGS (7)
  1. PAXIL [Suspect]
     Indication: DEPRESSION
     Route: 048
     Dates: start: 20060110, end: 20071023
  2. LUVOX [Concomitant]
     Indication: DEPRESSION
     Dosage: 50MG PER DAY
     Route: 048
     Dates: start: 20041022
  3. AMOBAN [Concomitant]
     Route: 048
  4. TRYPTANOL [Concomitant]
     Indication: DEPRESSION
     Dosage: 20MG PER DAY
     Route: 048
     Dates: start: 20060620
  5. MYSLEE [Concomitant]
     Route: 048
  6. HALCION [Concomitant]
     Route: 048
  7. DOGMATYL [Concomitant]
     Indication: DEPRESSION
     Route: 048
     Dates: start: 20030729

REACTIONS (3)
  - AGGRESSION [None]
  - AGITATION [None]
  - ANGER [None]
